FAERS Safety Report 7119871-3 (Version None)
Quarter: 2010Q4

REPORT INFORMATION
  Report Type: 
  Country: None (occurrence: None)
  Receive Date: 20101123
  Receipt Date: 20100917
  Transmission Date: 20110411
  Serious: No
  Sender: FDA-Public Use
  Company Number: US-BRISTOL-MYERS SQUIBB COMPANY-15292253

PATIENT
  Age: 67 Year
  Sex: Female

DRUGS (8)
  1. ONGLYZA [Suspect]
  2. INSULIN [Concomitant]
  3. LEVOTHYROXINE SODIUM [Concomitant]
  4. OMEPRAZOLE [Concomitant]
  5. PLAVIX [Concomitant]
  6. FUROSEMIDE [Concomitant]
  7. REGLAN [Concomitant]
  8. SIMVASTATIN [Concomitant]

REACTIONS (1)
  - HEPATIC ENZYME INCREASED [None]
